FAERS Safety Report 23805671 (Version 2)
Quarter: 2024Q2

REPORT INFORMATION
  Report Type: Spontaneous
  Country: US (occurrence: US)
  Receive Date: 20240502
  Receipt Date: 20240530
  Transmission Date: 20240716
  Serious: No
  Sender: FDA-Public Use
  Company Number: US-APOTEX-2024AP004588

PATIENT
  Age: 71 Year
  Sex: Female

DRUGS (35)
  1. PAROXETINE [Suspect]
     Active Substance: PAROXETINE
     Indication: Hot flush
     Dosage: 2 DOSAGE FORM, Q.AM (ONCE A DAY)
     Route: 065
  2. PAROXETINE [Suspect]
     Active Substance: PAROXETINE
     Indication: Feeling hot
  3. NORVASC [Concomitant]
     Active Substance: AMLODIPINE BESYLATE
     Indication: Hypertension
     Dosage: 5 MILLIGRAM
     Route: 065
  4. ASPIRIN [Concomitant]
     Active Substance: ASPIRIN
     Indication: Thrombosis prophylaxis
     Dosage: 81 MILLIGRAM
     Route: 065
  5. COREG [Concomitant]
     Active Substance: CARVEDILOL
     Indication: Hypertension
     Dosage: 3.125 MILLIGRAM, BID
     Route: 065
  6. COREG [Concomitant]
     Active Substance: CARVEDILOL
     Indication: Cardiac disorder
  7. CRESTOR [Concomitant]
     Active Substance: ROSUVASTATIN CALCIUM
     Indication: Thrombosis prophylaxis
     Dosage: 10 MILLIGRAM
     Route: 065
  8. COENZYME Q10 [Concomitant]
     Active Substance: DIETARY SUPPLEMENT\UBIDECARENONE
     Indication: Product used for unknown indication
     Dosage: UNK
     Route: 065
  9. EUTHYROX [Concomitant]
     Active Substance: LEVOTHYROXINE SODIUM
     Indication: Thyroid disorder
     Dosage: 50 MICROGRAM
     Route: 065
  10. ZETIA [Concomitant]
     Active Substance: EZETIMIBE
     Indication: Blood cholesterol abnormal
     Dosage: 10 MILLIGRAM
     Route: 065
  11. FLONASE [Concomitant]
     Active Substance: FLUTICASONE PROPIONATE
     Indication: Multiple allergies
     Dosage: 50 MICROGRAM
     Route: 065
  12. OSTEO BI-FLEX [CHONDROITIN SULFATE;GLUCOSAMINE HYDROCHLORIDE] [Concomitant]
     Indication: Arthralgia
     Dosage: 500 MILLIGRAM, BID
     Route: 065
  13. OSTEO BI-FLEX [CHONDROITIN SULFATE;GLUCOSAMINE HYDROCHLORIDE] [Concomitant]
     Indication: Arthralgia
  14. COZAAR [Concomitant]
     Active Substance: LOSARTAN POTASSIUM
     Indication: Hypertension
     Dosage: 100 MILLIGRAM
     Route: 065
  15. MAGNESIUM L-THREONATE [Concomitant]
     Indication: Cardiac disorder
     Dosage: 1 DOSAGE FORM, TID (1 CAPSULE THREE TIMES A DAY) (A TOTAL OF 144 MG)
     Route: 065
  16. CYANOCOBALAMIN [Concomitant]
     Active Substance: CYANOCOBALAMIN
     Indication: Supplementation therapy
     Dosage: 1000 MICROGRAM
     Route: 065
  17. FISH OIL\OMEGA-3 FATTY ACIDS [Concomitant]
     Active Substance: FISH OIL\OMEGA-3 FATTY ACIDS
     Indication: Product used for unknown indication
     Dosage: 1000 MILLIGRAM, BID
     Route: 065
  18. ALPHA LIPOIC ACID [Concomitant]
     Active Substance: .ALPHA.-LIPOIC ACID
     Indication: Antioxidant therapy
     Dosage: 1 DOSAGE FORM (600 MG), QD
     Route: 065
  19. RESVERATROL + GRAPESEED EXTRACT [Concomitant]
     Indication: Antioxidant therapy
     Dosage: UNK, QD
     Route: 065
  20. POMEGRANATE [PUNICA GRANATUM] [Concomitant]
     Indication: Antioxidant therapy
     Dosage: UNK, QD
     Route: 065
  21. VITAMIN D3 [Concomitant]
     Active Substance: CHOLECALCIFEROL
     Indication: Product used for unknown indication
     Dosage: 50 MICROGRAM OR 2000 IU, QD
     Route: 065
  22. HERBALS\TURMERIC [Concomitant]
     Active Substance: HERBALS\TURMERIC
     Indication: Inflammation
     Dosage: 1000 MILLIGRAM, BID
     Route: 065
  23. CLOBETASOL PROPIONATE [Concomitant]
     Active Substance: CLOBETASOL PROPIONATE
     Indication: Lichen sclerosus
     Dosage: 0.05 PERCENT
     Route: 065
  24. IBUPROFEN [Concomitant]
     Active Substance: IBUPROFEN
     Indication: Pain
     Dosage: UNK, OCCASIONALLY
     Route: 065
  25. IBUPROFEN [Concomitant]
     Active Substance: IBUPROFEN
     Indication: Headache
  26. IBUPROFEN [Concomitant]
     Active Substance: IBUPROFEN
     Indication: Back pain
  27. TYLENOL [Concomitant]
     Active Substance: ACETAMINOPHEN
     Indication: Pain
     Dosage: UNK, OCCASIONALLY
     Route: 065
  28. TYLENOL [Concomitant]
     Active Substance: ACETAMINOPHEN
     Indication: Headache
  29. TYLENOL [Concomitant]
     Active Substance: ACETAMINOPHEN
     Indication: Back pain
  30. BENADRYL [Concomitant]
     Active Substance: DIPHENHYDRAMINE HYDROCHLORIDE
     Indication: Multiple allergies
     Dosage: 12.5 MILLIGRAM, PRN
     Route: 065
  31. ZADITOR [Concomitant]
     Active Substance: KETOTIFEN FUMARATE
     Indication: Multiple allergies
     Dosage: 0.025 PERCENT, PRN
     Route: 065
  32. OLOPATADINE [Concomitant]
     Active Substance: OLOPATADINE
     Indication: Product used for unknown indication
     Dosage: 0.7 PERCENT
     Route: 065
  33. ULTIMATE BONE SUPPORT [Concomitant]
     Indication: Product used for unknown indication
     Dosage: UNK
     Route: 065
  34. ESTRADIOL [Concomitant]
     Active Substance: ESTRADIOL
     Indication: Hormone replacement therapy
     Dosage: 0.01 PERCENT
     Route: 065
  35. ESTRADIOL [Concomitant]
     Active Substance: ESTRADIOL
     Indication: Hormone level abnormal

REACTIONS (2)
  - Product dose omission issue [Unknown]
  - Product packaging quantity issue [Unknown]
